FAERS Safety Report 5782680-1 (Version None)
Quarter: 2008Q2

REPORT INFORMATION
  Report Type: 
  Country: None (occurrence: None)
  Receive Date: 20080619
  Receipt Date: 20080619
  Transmission Date: 20081010
  Serious: Yes (Hospitalization)
  Sender: FDA-Public Use
  Company Number: None

PATIENT
  Sex: Male
  Weight: 42 kg

DRUGS (19)
  1. ERLOTINIB [Suspect]
     Indication: OESOPHAGEAL ADENOCARCINOMA
     Dosage: 150 MG, QD, PO
     Route: 048
     Dates: start: 20070910, end: 20071022
  2. BEVACIZUMAB [Suspect]
     Dosage: 1077 MG, Q 21 DAYS, IV
     Route: 042
     Dates: start: 20070910, end: 20071001
  3. PROGRAF [Concomitant]
  4. MYFORTIC [Concomitant]
  5. PREVACID [Concomitant]
  6. LIPITOR [Concomitant]
  7. PREDNISONE 50MG TAB [Concomitant]
  8. METOPROLOL SUCCINATE [Concomitant]
  9. ASPIRIN [Concomitant]
  10. COZAAR [Concomitant]
  11. OXYCONTIN [Concomitant]
  12. OXYCODONE HCL [Concomitant]
  13. REGLAN [Concomitant]
  14. LUNESTA [Concomitant]
  15. MARINOL [Concomitant]
  16. HUMALOG [Concomitant]
  17. COMPAZINE [Concomitant]
  18. NEXIUM [Concomitant]
  19. JANUVIA [Concomitant]

REACTIONS (5)
  - CLOSTRIDIAL INFECTION [None]
  - COLITIS [None]
  - DISEASE PROGRESSION [None]
  - LOBAR PNEUMONIA [None]
  - VENA CAVA THROMBOSIS [None]
